FAERS Safety Report 7987751-7 (Version None)
Quarter: 2011Q4

REPORT INFORMATION
  Report Type: 
  Country: None (occurrence: None)
  Receive Date: 20111216
  Receipt Date: 20101102
  Transmission Date: 20120403
  Serious: No
  Sender: FDA-Public Use
  Company Number: US-BRISTOL-MYERS SQUIBB COMPANY-15363575

PATIENT
  Age: 61 Year
  Sex: Female

DRUGS (10)
  1. CITRACAL [Concomitant]
     Indication: MINERAL SUPPLEMENTATION
  2. ADVAIR DISKUS 100/50 [Concomitant]
  3. SYNTHROID [Concomitant]
  4. VITAMIN D [Concomitant]
     Indication: VITAMIN SUPPLEMENTATION
  5. MAGNESIUM [Concomitant]
     Indication: MINERAL SUPPLEMENTATION
  6. ABILIFY [Suspect]
     Indication: DEPRESSION
     Dosage: RESTARTED ON NOV10 TOOK HALF TAB OF 1MG
     Dates: start: 20030101
  7. CYMBALTA [Concomitant]
     Indication: DEPRESSION
  8. BRONCHODILATOR [Concomitant]
  9. RECLAST [Concomitant]
  10. AVONEX [Concomitant]
     Dosage: EVERY WED
     Route: 030

REACTIONS (2)
  - EUPHORIC MOOD [None]
  - FEELING ABNORMAL [None]
